FAERS Safety Report 24141584 (Version 2)
Quarter: 2024Q3

REPORT INFORMATION
  Report Type: Spontaneous
  Country: PT (occurrence: PT)
  Receive Date: 20240726
  Receipt Date: 20240812
  Transmission Date: 20241017
  Serious: Yes (Hospitalization, Other)
  Sender: AUROBINDO
  Company Number: PT-AUROBINDO-AUR-APL-2024-037279

PATIENT
  Age: 61 Year

DRUGS (4)
  1. CAPECITABINE [Suspect]
     Active Substance: CAPECITABINE
     Indication: Gastric cancer
     Dosage: UNK (THREE COURSES OF CAPOX)
     Route: 065
  2. OXALIPLATIN [Suspect]
     Active Substance: OXALIPLATIN
     Indication: Gastric cancer
     Dosage: UNK (ONE COURSE OF FOLFOX)
     Route: 065
  3. FLUOROURACIL [Concomitant]
     Active Substance: FLUOROURACIL
     Indication: Gastric cancer
     Dosage: UNK (ONE COURSE OF FOLFOX)
     Route: 065
  4. LEUCOVORIN [Concomitant]
     Active Substance: LEUCOVORIN\LEUCOVORIN CALCIUM
     Indication: Gastric cancer
     Dosage: UNK (ONE COURSE OF FOLFOX)
     Route: 065

REACTIONS (5)
  - Portal hypertension [Unknown]
  - Drug-induced liver injury [Unknown]
  - Hypertension [Unknown]
  - Liver injury [Unknown]
  - Off label use [Unknown]
